FAERS Safety Report 7364936-4 (Version None)
Quarter: 2011Q1

REPORT INFORMATION
  Report Type: 
  Country: None (occurrence: None)
  Receive Date: 20110316
  Receipt Date: 20110316
  Transmission Date: 20110831
  Serious: Yes (Hospitalization, Disabling, Other)
  Sender: FDA-Public Use
  Company Number: None

PATIENT
  Age: 62 Year
  Sex: Female
  Weight: 127.9144 kg

DRUGS (1)
  1. BONIVA [Suspect]
     Indication: BONE DENSITY ABNORMAL
     Dosage: 150 MG TABLET 1X MO ORAL
     Route: 048
     Dates: start: 20061031, end: 20090101

REACTIONS (5)
  - DYSSTASIA [None]
  - PAIN IN JAW [None]
  - DYSPHAGIA [None]
  - FOREIGN BODY [None]
  - FEMUR FRACTURE [None]
